FAERS Safety Report 8495499-8 (Version None)
Quarter: 2012Q3

REPORT INFORMATION
  Report Type: 
  Country: None (occurrence: None)
  Receive Date: 20120709
  Receipt Date: 20120706
  Transmission Date: 20120928
  Serious: Yes (Hospitalization, Other)
  Sender: FDA-Public Use
  Company Number: JP-ABBOTT-05P-087-0316092-00

PATIENT
  Sex: Male

DRUGS (14)
  1. EMTRICITABINE AND TENOFOVIR DISOPROXIL FUMARATE [Concomitant]
     Indication: HIV INFECTION
     Route: 048
     Dates: start: 20050524
  2. NORVIR [Suspect]
     Route: 048
     Dates: start: 20080714
  3. GLYCINE [Concomitant]
     Indication: PRODUCT USED FOR UNKNOWN INDICATION
     Dates: start: 20070418
  4. COAGULATION FACTOR VIII [Concomitant]
     Indication: HAEMARTHROSIS
     Route: 042
     Dates: start: 20050401, end: 20050411
  5. AMMONIUM GLYCYRRHIZINATE [Concomitant]
     Indication: PRODUCT USED FOR UNKNOWN INDICATION
     Dates: start: 20050401, end: 20050615
  6. TRUVADA [Suspect]
     Indication: HIV INFECTION
     Route: 048
     Dates: start: 20050425, end: 20050523
  7. AMMONIUM GLYCYRRHIZINATE [Concomitant]
     Dates: start: 20070418
  8. CYSTEINE [Concomitant]
     Indication: PRODUCT USED FOR UNKNOWN INDICATION
     Dates: start: 20070418
  9. NORVIR [Suspect]
     Indication: HIV INFECTION
     Route: 048
     Dates: start: 20040728, end: 20050424
  10. EFAVIRENZ [Suspect]
     Indication: HIV INFECTION
     Route: 048
     Dates: start: 20050425, end: 20080713
  11. TENOFOVIR DISOPROXIL FUMARATE [Concomitant]
     Indication: HIV INFECTION
     Route: 048
     Dates: start: 20050424, end: 20050523
  12. GLYCYRRHISINIC ACID [Concomitant]
     Indication: PRODUCT USED FOR UNKNOWN INDICATION
     Dates: start: 20110418
  13. OCTOCOG ALFA [Concomitant]
     Indication: HAEMOPHILIA
     Dosage: 1-3 TIMES PER WEEK
     Route: 055
     Dates: start: 20050412
  14. TRUVADA [Suspect]
     Dates: start: 20050524

REACTIONS (22)
  - HAEMATOCHEZIA [None]
  - HAEMOGLOBIN DECREASED [None]
  - OESOPHAGEAL VARICES HAEMORRHAGE [None]
  - GASTROENTERITIS [None]
  - ANASTOMOTIC HAEMORRHAGE [None]
  - EROSIVE OESOPHAGITIS [None]
  - EROSIVE DUODENITIS [None]
  - STAPHYLOCOCCAL INFECTION [None]
  - LIVER FUNCTION TEST ABNORMAL [None]
  - ASCITES [None]
  - NAUSEA [None]
  - INTESTINAL MUCOSAL HYPERTROPHY [None]
  - HEPATOSPLENOMEGALY [None]
  - HEPATITIS C [None]
  - ARTHRALGIA [None]
  - HYPERTHERMIA [None]
  - ARTHRITIS BACTERIAL [None]
  - GASTRITIS [None]
  - PYREXIA [None]
  - ABDOMINAL PAIN [None]
  - HEPATIC FUNCTION ABNORMAL [None]
  - LIPOATROPHY [None]
